FAERS Safety Report 5538186-8 (Version None)
Quarter: 2007Q4

REPORT INFORMATION
  Report Type: 
  Country: None (occurrence: None)
  Receive Date: 20071207
  Receipt Date: 20071127
  Transmission Date: 20080405
  Serious: Yes (Other)
  Sender: FDA-Public Use
  Company Number: GB-PFIZER INC-2007101729

PATIENT
  Age: 52 Year
  Sex: Male
  Weight: 85.9 kg

DRUGS (8)
  1. CHAMPIX [Suspect]
     Indication: SMOKING CESSATION THERAPY
     Route: 048
     Dates: start: 20070729, end: 20070812
  2. CALCEOS [Concomitant]
  3. DIHYDROCODEINE [Concomitant]
     Route: 048
  4. LANSOPRAZOLE [Concomitant]
     Route: 048
  5. LOPERAMIDE HCL [Concomitant]
     Route: 048
  6. MIRTAZAPINE [Concomitant]
  7. MORPHINE SULFATE [Concomitant]
     Route: 048
  8. PREDNISOLONE [Concomitant]
     Route: 048

REACTIONS (2)
  - CROHN'S DISEASE [None]
  - NAUSEA [None]
